FAERS Safety Report 12963332 (Version 2)
Quarter: 2016Q4

REPORT INFORMATION
  Report Type: Report from Study
  Country: US (occurrence: US)
  Receive Date: 20161122
  Receipt Date: 20161224
  Transmission Date: 20170207
  Serious: No
  Sender: FDA-Public Use
  Company Number: US-009507513-1611USA003860

PATIENT
  Age: 54 Year
  Sex: Male

DRUGS (2)
  1. BELSOMRA [Suspect]
     Active Substance: SUVOREXANT
     Dosage: UNK, UNKNOWN
     Route: 065
  2. BELSOMRA [Suspect]
     Active Substance: SUVOREXANT
     Dosage: TOOK 10 MG PILL, AFTER 30 MINUTES TOOK THE SECOND PILL AND 3.5 HOURS LATER TOOK THE THIRD PILL
     Route: 048

REACTIONS (1)
  - Drug ineffective [Unknown]
